FAERS Safety Report 8262278-6 (Version None)
Quarter: 2012Q2

REPORT INFORMATION
  Report Type: 
  Country: None (occurrence: None)
  Receive Date: 20120405
  Receipt Date: 20120323
  Transmission Date: 20120825
  Serious: No
  Sender: FDA-Public Use
  Company Number: US-ELI_LILLY_AND_COMPANY-US201203007828

PATIENT
  Sex: Male

DRUGS (5)
  1. CIALIS [Suspect]
     Dosage: 1 DF, UNK
  2. CELEXA [Concomitant]
     Dosage: 20 MG, UNK
  3. XANAX [Concomitant]
     Dosage: .25 MG, EVERY 6 HRS
  4. CIALIS [Suspect]
     Dosage: 5 MG, QD
     Dates: start: 20120316
  5. CIALIS [Suspect]
     Indication: ERECTILE DYSFUNCTION
     Dosage: 20 MG, UNK

REACTIONS (4)
  - WRONG TECHNIQUE IN DRUG USAGE PROCESS [None]
  - FOOD INTERACTION [None]
  - NAUSEA [None]
  - VISION BLURRED [None]
